FAERS Safety Report 7440024-3 (Version None)
Quarter: 2011Q2

REPORT INFORMATION
  Report Type: 
  Country: None (occurrence: None)
  Receive Date: 20110427
  Receipt Date: 20110413
  Transmission Date: 20111010
  Serious: Yes (Other)
  Sender: FDA-Public Use
  Company Number: DE-GENENTECH-317111

PATIENT
  Age: 81 Year
  Sex: Male

DRUGS (15)
  1. PREDNISOLONE [Suspect]
     Dosage: UNK
     Route: 065
  2. VINCRISTINE [Suspect]
     Dosage: UNK
     Route: 065
  3. DOXORUBICIN HCL [Suspect]
     Indication: DIFFUSE LARGE B-CELL LYMPHOMA
     Dosage: 20 MG/M2, 1/MONTH
     Route: 065
  4. PREDNISOLONE [Suspect]
     Indication: DIFFUSE LARGE B-CELL LYMPHOMA
     Dosage: 100 MG, 1/MONTH
     Route: 065
  5. RITUXIMAB [Suspect]
     Indication: DIFFUSE LARGE B-CELL LYMPHOMA
     Dosage: 375 MG/M2, 1/MONTH
     Route: 065
  6. RITUXIMAB [Suspect]
     Dosage: UNK
     Route: 065
  7. DOXORUBICIN HCL [Suspect]
     Dosage: UNK
     Route: 065
  8. RITUXIMAB [Suspect]
     Dosage: UNK
     Route: 065
  9. VINCRISTINE [Suspect]
     Indication: DIFFUSE LARGE B-CELL LYMPHOMA
     Dosage: 1.4 MG/M2, 1/MONTH
     Route: 065
  10. CYCLOPHOSPHAMIDE [Suspect]
     Dosage: UNK
     Route: 065
  11. CYCLOPHOSPHAMIDE [Suspect]
     Dosage: UNK
     Route: 065
  12. VINCRISTINE [Suspect]
     Dosage: UNK
     Route: 065
  13. PREDNISOLONE [Suspect]
     Dosage: UNK
     Route: 065
  14. CYCLOPHOSPHAMIDE [Suspect]
     Indication: DIFFUSE LARGE B-CELL LYMPHOMA
     Dosage: 750 MG/M2, 1/MONTH
     Route: 065
  15. DOXORUBICIN HCL [Suspect]
     Dosage: UNK
     Route: 065

REACTIONS (6)
  - LEUKOPENIA [None]
  - THROMBOSIS [None]
  - AGITATION [None]
  - EXTRAVASATION [None]
  - HEADACHE [None]
  - DIZZINESS [None]
